FAERS Safety Report 11733187 (Version 5)
Quarter: 2016Q1

REPORT INFORMATION
  Report Type: Report from Study
  Country: CA (occurrence: CA)
  Receive Date: 20151113
  Receipt Date: 20160210
  Transmission Date: 20160525
  Serious: Yes (Death, Hospitalization, Other)
  Sender: FDA-Public Use
  Company Number: CA-ROCHE-1552937

PATIENT
  Age: 75 Year
  Sex: Female

DRUGS (6)
  1. RITUXAN [Suspect]
     Active Substance: RITUXIMAB
     Indication: VASCULITIS
     Dosage: DOSE AND FREQUENCY UNKNOWN?LAST DOSE OF ON 06-OCT-2014, 31/MAR/2015, 14/DEC/2015
     Route: 065
     Dates: start: 20140919
  2. CELLCEPT [Suspect]
     Active Substance: MYCOPHENOLATE MOFETIL\MYCOPHENOLATE MOFETIL HYDROCHLORIDE
     Indication: PRODUCT USED FOR UNKNOWN INDICATION
     Route: 065
  3. AMLODIPINE [Concomitant]
     Active Substance: AMLODIPINE BESYLATE
  4. ZOPLICONE [Concomitant]
     Active Substance: ZOPICLONE
  5. RABEPRAZOLE [Concomitant]
     Active Substance: RABEPRAZOLE
  6. PREDNISONE. [Concomitant]
     Active Substance: PREDNISONE

REACTIONS (12)
  - Mental disorder [Unknown]
  - Immunodeficiency [Unknown]
  - Lung infection [Fatal]
  - Pulmonary thrombosis [Unknown]
  - Asthenia [Unknown]
  - Granulomatosis with polyangiitis [Fatal]
  - Oxygen saturation decreased [Unknown]
  - Coma [Unknown]
  - Weight decreased [Not Recovered/Not Resolved]
  - Haemoglobin decreased [Unknown]
  - Ill-defined disorder [Unknown]
  - Lower respiratory tract infection [Unknown]

NARRATIVE: CASE EVENT DATE: 2015
